FAERS Safety Report 5009161-7 (Version None)
Quarter: 2006Q2

REPORT INFORMATION
  Report Type: 
  Country: None (occurrence: None)
  Receive Date: 20060518
  Receipt Date: 20060509
  Transmission Date: 20061013
  Serious: Yes (Death, Life-Threatening, Hospitalization)
  Sender: FDA-Public Use
  Company Number: 2006-BP-05210RO

PATIENT
  Age: 70 Year
  Sex: Female

DRUGS (18)
  1. LEUCOVORIN CALCIUM [Suspect]
     Indication: T-CELL LYMPHOMA
     Dosage: SEE TEXT, PO
     Route: 048
  2. DOXIL [Suspect]
     Indication: T-CELL LYMPHOMA
     Dosage: SEE TEXT (SEE TEXT), IV
     Route: 042
  3. CYCLOPHOSPHAMIDE [Suspect]
     Indication: T-CELL LYMPHOMA
     Dosage: SEE TEXT (SEE TEXT), IV
     Route: 042
  4. MESNA [Suspect]
     Indication: T-CELL LYMPHOMA
     Dosage: SEE TEXT (SEE TEXT), IV
     Route: 042
  5. VINCRISTINE [Suspect]
     Indication: T-CELL LYMPHOMA
     Dosage: SEE TEXT (SEE TEXT), IV
     Route: 042
  6. DECARDON (DEXAMEHTASONE) [Suspect]
     Indication: T-CELL LYMPHOMA
     Dosage: SEE TEXT (SEE TEXT),PO
     Route: 048
  7. METHOTREXATE [Suspect]
     Indication: T-CELL LYMPHOMA
     Dosage: SEE TEXT (SEE TEXT), IV
     Route: 042
  8. CYTARABINE [Suspect]
     Indication: T-CELL LYMPHOMA
     Dosage: SEE TEXT (SEE TEXT), IV
     Route: 042
  9. G-CSF (GRANULOCYTE COLONY STIMULATING FACTOR) [Concomitant]
  10. PROTONIX [Concomitant]
  11. ACYCLOVIR [Concomitant]
  12. LOTREL (LOTREL  /01289101) [Concomitant]
  13. AMBIEN [Concomitant]
  14. COMPAZINE (PROCHLORPERAZINE EDISYLAT) [Concomitant]
  15. DARVON [Concomitant]
  16. VALTREX (VALACICLOVIR HDYROCHLORIDE) [Concomitant]
  17. ZOFRAN [Concomitant]
  18. SODIUM ACETATE (SODIUM ACETATE) [Concomitant]

REACTIONS (22)
  - ACUTE PULMONARY OEDEMA [None]
  - ACUTE RESPIRATORY FAILURE [None]
  - ATRIAL FIBRILLATION [None]
  - ATRIAL TACHYCARDIA [None]
  - CARDIOMEGALY [None]
  - CYTOMEGALOVIRUS ANTIGEN POSITIVE [None]
  - CYTOMEGALOVIRUS VIRAEMIA [None]
  - DILATATION ATRIAL [None]
  - ELECTROLYTE IMBALANCE [None]
  - ESCHERICHIA URINARY TRACT INFECTION [None]
  - HAEMOGLOBIN DECREASED [None]
  - HYPERTENSIVE HEART DISEASE [None]
  - HYPOTENSION [None]
  - MYOCARDIAL INFARCTION [None]
  - PERICARDIAL EFFUSION [None]
  - PLATELET COUNT DECREASED [None]
  - PNEUMONIA BACTERIAL [None]
  - PNEUMONIA FUNGAL [None]
  - PNEUMONIA VIRAL [None]
  - PULSE ABNORMAL [None]
  - VENTRICULAR HYPERTROPHY [None]
  - WHITE BLOOD CELL COUNT DECREASED [None]
